FAERS Safety Report 9819556 (Version 2)
Quarter: 2014Q1

REPORT INFORMATION
  Report Type: Spontaneous
  Country: US (occurrence: US)
  Receive Date: 20140115
  Receipt Date: 20140115
  Transmission Date: 20141002
  Serious: Yes (Hospitalization, Other)
  Sender: FDA-Public Use
  Company Number: US-B.I. PHARMACEUTICALS,INC./RIDGEFIELD-2013-BI-22826BP

PATIENT
  Age: 82 Year
  Sex: Female
  Weight: 54.88 kg

DRUGS (22)
  1. PRADAXA [Suspect]
     Indication: ATRIAL FIBRILLATION
     Dosage: 300 MG
     Dates: start: 20110711, end: 20121130
  2. ASPIRIN [Concomitant]
     Dosage: 81 MG
  3. LIPITOR [Concomitant]
     Dosage: 40 MG
  4. CALCIUM [Concomitant]
     Dosage: 1200 MG
     Route: 048
  5. VITAMIN D3 [Concomitant]
     Dosage: 2000 U
  6. CARDIZEM CD [Concomitant]
     Dosage: 240 MG
  7. DULCOLAX STOOL SOFTENER [Concomitant]
     Dosage: 200 MG
     Route: 048
  8. DOXEPIN [Concomitant]
     Dosage: 150 MG
     Route: 048
  9. PROCRIT [Concomitant]
     Indication: ANAEMIA
     Route: 058
  10. PROCRIT [Concomitant]
     Indication: THALASSAEMIA
  11. DURAGESIC [Concomitant]
     Route: 062
  12. FERROUS SULFATE [Concomitant]
     Dosage: 650 MG
  13. LASIX [Concomitant]
     Dosage: 40 MG
  14. LUTEIN [Concomitant]
  15. PRILOSEC [Concomitant]
     Dosage: 40 MG
  16. CELEXA [Concomitant]
     Dosage: 20 MG
     Route: 048
  17. FLEET ENEMA [Concomitant]
  18. BISACODYL [Concomitant]
     Route: 054
  19. NORCO [Concomitant]
     Indication: PAIN
     Route: 048
  20. LISINOPRIL [Concomitant]
     Dosage: 5 MG
     Route: 048
  21. POTASSIUM CHLORIDE [Concomitant]
     Dosage: 20 MEQ
     Route: 048
  22. METOPROLOL [Concomitant]
     Dosage: 25 MG
     Route: 048

REACTIONS (15)
  - Gastrointestinal haemorrhage [Unknown]
  - Syncope [Unknown]
  - Fall [Unknown]
  - Pneumothorax [Recovered/Resolved]
  - Hip fracture [Unknown]
  - Contusion [Unknown]
  - Haematoma [Unknown]
  - Ecchymosis [Unknown]
  - Haemorrhagic anaemia [Unknown]
  - Cerebrovascular accident [Unknown]
  - Subarachnoid haemorrhage [Unknown]
  - Subdural haemorrhage [Unknown]
  - Myocardial infarction [Unknown]
  - Blood urine present [Unknown]
  - Conjunctival haemorrhage [Unknown]
